FAERS Safety Report 6737544-3 (Version None)
Quarter: 2010Q2

REPORT INFORMATION
  Report Type: 
  Country: None (occurrence: None)
  Receive Date: 20100521
  Receipt Date: 20100521
  Transmission Date: 20101027
  Serious: Yes (Other)
  Sender: FDA-Public Use
  Company Number: None

PATIENT
  Age: 18 Year
  Sex: Female
  Weight: 91 kg

DRUGS (2)
  1. RISPERDAL [Suspect]
     Indication: DEPRESSION
     Dosage: 2MG 1 1/2 TABS  PO QHS  (INCREASED DOSE 3 DAYS AGO)
  2. CELEXA [Concomitant]

REACTIONS (1)
  - DYSTONIA [None]
